FAERS Safety Report 7201527-X (Version None)
Quarter: 2010Q4

REPORT INFORMATION
  Report Type: 
  Country: None (occurrence: None)
  Receive Date: 20101229
  Receipt Date: 20101220
  Transmission Date: 20110411
  Serious: No
  Sender: FDA-Public Use
  Company Number: NL-ASTRAZENECA-2010SE59969

PATIENT
  Sex: Male

DRUGS (1)
  1. QUETIAPINE [Suspect]
     Route: 048
     Dates: start: 20101001

REACTIONS (1)
  - THROMBOCYTOPENIA [None]
